FAERS Safety Report 10551583 (Version 1)
Quarter: 2014Q4

REPORT INFORMATION
  Report Type: Spontaneous
  Country: US (occurrence: US)
  Receive Date: 20141029
  Receipt Date: 20141029
  Transmission Date: 20150529
  Serious: No
  Sender: FDA-Public Use
  Company Number: US-PFIZER INC-2014298278

PATIENT
  Age: 58 Year
  Sex: Female
  Weight: 110 kg

DRUGS (1)
  1. LYRICA [Suspect]
     Active Substance: PREGABALIN
     Indication: DIABETIC NEUROPATHY
     Dosage: 75 MG, AS NEEDED
     Route: 048
     Dates: start: 2013

REACTIONS (1)
  - Somnolence [Unknown]
